FAERS Safety Report 4429504-2 (Version None)
Quarter: 2004Q3

REPORT INFORMATION
  Report Type: 
  Country: None (occurrence: None)
  Receive Date: 20040818
  Receipt Date: 20040818
  Transmission Date: 20050211
  Serious: Yes (Hospitalization)
  Sender: FDA-Public Use
  Company Number: None

PATIENT
  Age: 56 Year
  Sex: Male
  Weight: 53.4 kg

DRUGS (16)
  1. OMNIPAQUE 140 [Suspect]
     Indication: DIAGNOSTIC PROCEDURE
     Dosage: 250 ML IV OTO
     Route: 042
     Dates: start: 20040414
  2. MORPHINE [Concomitant]
  3. ATENOLOL [Concomitant]
  4. HYDRODIURIL [Concomitant]
  5. LEVAQUIN [Concomitant]
  6. ATIVAN [Concomitant]
  7. BENADRYL [Concomitant]
  8. VALIUM [Concomitant]
  9. CIMETIDINE [Concomitant]
  10. VASOTEC [Concomitant]
  11. THIAMINE [Concomitant]
  12. MUCOCYST [Concomitant]
  13. ASPIRIN [Concomitant]
  14. MULTIVITAMIN [Concomitant]
  15. NITROGLYCERIN [Concomitant]
  16. COREG [Concomitant]

REACTIONS (4)
  - HYPOTENSION [None]
  - NEPHROPATHY TOXIC [None]
  - RENAL FAILURE ACUTE [None]
  - RENAL TUBULAR NECROSIS [None]
